FAERS Safety Report 15960575 (Version 3)
Quarter: 2019Q1

REPORT INFORMATION
  Report Type: Spontaneous
  Country: PT (occurrence: PT)
  Receive Date: 20190214
  Receipt Date: 20190320
  Transmission Date: 20190417
  Serious: Yes (Life-Threatening, Hospitalization, Other)
  Sender: FDA-Public Use
  Company Number: PT-AUROBINDO-AUR-APL-2019-007453

PATIENT

DRUGS (3)
  1. PACLITAXEL. [Suspect]
     Active Substance: PACLITAXEL
     Indication: PENIS CARCINOMA STAGE III
     Dosage: UNK
     Route: 065
     Dates: start: 2017
  2. CAPECITABINE. [Suspect]
     Active Substance: CAPECITABINE
     Indication: PENIS CARCINOMA STAGE III
     Dosage: UNK
     Route: 065
     Dates: start: 2017
  3. CARBOPLATIN. [Suspect]
     Active Substance: CARBOPLATIN
     Indication: PENIS CARCINOMA STAGE III
     Dosage: UNK
     Route: 065
     Dates: start: 2017

REACTIONS (3)
  - Off label use [Unknown]
  - Fluid overload [Not Recovered/Not Resolved]
  - Hypoxia [Recovered/Resolved]
